FAERS Safety Report 24298518 (Version 1)
Quarter: 2024Q3

REPORT INFORMATION
  Report Type: Spontaneous
  Country: US (occurrence: None)
  Receive Date: 20240906
  Receipt Date: 20240906
  Transmission Date: 20241017
  Serious: No
  Sender: Public
  Company Number: None

PATIENT
  Age: 46 Year
  Sex: Female
  Weight: 58.5 kg

DRUGS (10)
  1. METRONIDAZOLE [Suspect]
     Active Substance: METRONIDAZOLE
     Indication: Endometritis
     Dosage: OTHER QUANTITY : 1 CAPSULE(S);?FREQUENCY : TWICE A DAY;?
     Route: 048
     Dates: start: 20240822, end: 20240827
  2. METRONIDAZOLE [Suspect]
     Active Substance: METRONIDAZOLE
     Indication: Bacterial vaginosis
  3. METRONIDAZOLE [Suspect]
     Active Substance: METRONIDAZOLE
     Indication: Bacterial vaginosis
  4. METRONIDAZOLE [Suspect]
     Active Substance: METRONIDAZOLE
     Indication: Bacterial vaginosis
  5. DESVENLAFAXINE SUCCINATE [Concomitant]
     Active Substance: DESVENLAFAXINE SUCCINATE
  6. BUPROPION [Concomitant]
     Active Substance: BUPROPION
  7. AMOXICILLIN\CLAVULANIC ACID [Concomitant]
     Active Substance: AMOXICILLIN\CLAVULANIC ACID
  8. collagen/biotin [Concomitant]
  9. VITAMINS [Concomitant]
     Active Substance: VITAMINS
  10. MELATONIN [Concomitant]
     Active Substance: MELATONIN

REACTIONS (5)
  - Confusional state [None]
  - Asthenia [None]
  - Balance disorder [None]
  - Palpitations [None]
  - Hypopnoea [None]

NARRATIVE: CASE EVENT DATE: 20240827
